FAERS Safety Report 5347472-6 (Version None)
Quarter: 2007Q2

REPORT INFORMATION
  Report Type: 
  Country: None (occurrence: None)
  Receive Date: 20070606
  Receipt Date: 20070525
  Transmission Date: 20071010
  Serious: Yes (Other)
  Sender: FDA-Public Use
  Company Number: PHBS2007US08862

PATIENT
  Age: 29 Year
  Sex: Female

DRUGS (2)
  1. DESFERRIOXAMINE MESYLATE [Suspect]
     Indication: HAEMOSIDEROSIS
     Route: 058
  2. RED BLOOD CELLS [Concomitant]

REACTIONS (3)
  - CAESAREAN SECTION [None]
  - DRUG EXPOSURE DURING PREGNANCY [None]
  - PREMATURE LABOUR [None]
